FAERS Safety Report 9117259 (Version 1)
Quarter: 2013Q1

REPORT INFORMATION
  Report Type: Spontaneous
  Country: GB (occurrence: GB)
  Receive Date: 20130225
  Receipt Date: 20130225
  Transmission Date: 20140127
  Serious: Yes (Life-Threatening)
  Sender: FDA-Public Use
  Company Number: GB-JNJFOC-20130211378

PATIENT
  Age: 53 Year
  Sex: Male
  Weight: 135 kg

DRUGS (7)
  1. XARELTO [Suspect]
     Indication: THROMBOSIS PROPHYLAXIS
     Route: 048
     Dates: start: 20130116, end: 20130125
  2. XARELTO [Suspect]
     Indication: DEEP VEIN THROMBOSIS
     Route: 048
     Dates: start: 20130116, end: 20130125
  3. SIMVASTATIN [Concomitant]
     Route: 048
  4. RANITIDINE [Concomitant]
     Route: 065
  5. ENALAPRIL [Concomitant]
     Route: 065
  6. ACIDEX [Concomitant]
     Route: 065
  7. AMLODIPINE [Concomitant]
     Route: 065

REACTIONS (2)
  - Deep vein thrombosis [Recovering/Resolving]
  - Drug ineffective [Unknown]
